FAERS Safety Report 7271587-9 (Version None)
Quarter: 2011Q1

REPORT INFORMATION
  Report Type: 
  Country: None (occurrence: None)
  Receive Date: 20110121
  Receipt Date: 20110121
  Transmission Date: 20110831
  Serious: Yes (Hospitalization, Other)
  Sender: FDA-Public Use
  Company Number: None

PATIENT
  Age: 55 Year
  Sex: Male
  Weight: 88.25 kg

DRUGS (2)
  1. TELAVANCIN 250 MG ASTELLAS [Suspect]
     Indication: CELLULITIS
     Dosage: 880 MG DAILY IV
     Route: 042
     Dates: start: 20101228, end: 20101230
  2. TELAVANCIN 750 MG ASTELLAS [Suspect]

REACTIONS (1)
  - BLOOD CREATININE INCREASED [None]
